FAERS Safety Report 11430663 (Version 1)
Quarter: 2015Q3

REPORT INFORMATION
  Report Type: Spontaneous
  Country: US (occurrence: US)
  Receive Date: 20150828
  Receipt Date: 20150828
  Transmission Date: 20151125
  Serious: No
  Sender: FDA-Public Use
  Company Number: US-ROCHE-1144313

PATIENT
  Sex: Female

DRUGS (3)
  1. PEGASYS [Suspect]
     Active Substance: PEGINTERFERON ALFA-2A
     Indication: CHRONIC HEPATITIS C
     Route: 058
     Dates: start: 20120930, end: 20130303
  2. COPEGUS [Suspect]
     Active Substance: RIBAVIRIN
     Indication: CHRONIC HEPATITIS C
     Dosage: IN 600/600 DIVIDED DOSES
     Route: 048
     Dates: start: 20120930
  3. BENADRYL [Concomitant]
     Active Substance: DIPHENHYDRAMINE HYDROCHLORIDE
     Indication: URTICARIA

REACTIONS (25)
  - Pain in extremity [Unknown]
  - Herpes zoster [Unknown]
  - Gingival swelling [Unknown]
  - Decreased appetite [Unknown]
  - Myalgia [Unknown]
  - Hypoaesthesia [Unknown]
  - Cheilitis [Unknown]
  - Stomatitis [Unknown]
  - Weight decreased [Unknown]
  - Dyspnoea [Unknown]
  - Mass [Unknown]
  - Lip blister [Unknown]
  - Dysgeusia [Unknown]
  - Urticaria [Unknown]
  - Tooth extraction [Unknown]
  - Oral mucosal blistering [Unknown]
  - Lip disorder [Unknown]
  - Oral discomfort [Unknown]
  - Injection site bruising [Unknown]
  - Oral disorder [Unknown]
  - Nausea [Unknown]
  - Vomiting [Unknown]
  - Pruritus [Unknown]
  - Chest pain [Unknown]
  - Rash erythematous [Unknown]
